FAERS Safety Report 12489592 (Version 1)
Quarter: 2016Q2

REPORT INFORMATION
  Report Type: Spontaneous
  Country: JP (occurrence: JP)
  Receive Date: 20160622
  Receipt Date: 20160622
  Transmission Date: 20160815
  Serious: Yes (Other)
  Sender: FDA-Public Use
  Company Number: PHJP1900JP001597

PATIENT
  Age: 64 Year
  Sex: Female
  Weight: 36 kg

DRUGS (12)
  1. SANDIMMUN [Suspect]
     Active Substance: CYCLOSPORINE
     Dosage: 100 MG, QD
     Route: 048
     Dates: start: 19911123, end: 19911124
  2. SANDIMMUN [Suspect]
     Active Substance: CYCLOSPORINE
     Dosage: 100 MG, QD
     Route: 048
     Dates: start: 19911203
  3. POLYGLOBIN [Suspect]
     Active Substance: HUMAN IMMUNOGLOBULIN G
     Indication: APLASTIC ANAEMIA
     Dosage: 15 G, QD
     Route: 065
     Dates: start: 19911101, end: 19911105
  4. DANAZOL. [Concomitant]
     Active Substance: DANAZOL
     Indication: APLASTIC ANAEMIA
     Dosage: 200 MG, QD
     Route: 048
     Dates: start: 19911019
  5. GRAN [Concomitant]
     Active Substance: FILGRASTIM
     Indication: APLASTIC ANAEMIA
     Dosage: 300 DF, QD
     Route: 065
     Dates: start: 19911101, end: 19911218
  6. SANDIMMUN [Suspect]
     Active Substance: CYCLOSPORINE
     Dosage: 150 MG, QD
     Route: 048
     Dates: start: 19911115, end: 19911122
  7. SANDIMMUN [Suspect]
     Active Substance: CYCLOSPORINE
     Indication: APLASTIC ANAEMIA
     Dosage: 200 MG, QD
     Route: 048
     Dates: start: 19911108, end: 19911114
  8. VENILON [Suspect]
     Active Substance: HUMAN IMMUNOGLOBULIN G
     Indication: APLASTIC ANAEMIA
     Dosage: 15 G, QD
     Route: 065
     Dates: start: 19911124, end: 19911124
  9. POLYGLOBIN [Suspect]
     Active Substance: HUMAN IMMUNOGLOBULIN G
     Dosage: 15 G, QD
     Route: 065
     Dates: start: 19911122, end: 19911123
  10. PREDNISOLONE. [Concomitant]
     Active Substance: PREDNISOLONE
     Indication: IMMUNE THROMBOCYTOPENIC PURPURA
  11. PREDNISOLONE. [Concomitant]
     Active Substance: PREDNISOLONE
     Indication: APLASTIC ANAEMIA
     Dosage: 10 MG, QD
     Route: 048
     Dates: start: 19910927
  12. METHYCOBAL [Concomitant]
     Active Substance: METHYLCOBALAMIN
     Indication: NEUROPATHY PERIPHERAL
     Dosage: 1.5 MG, QD
     Route: 048
     Dates: start: 19911107, end: 19920124

REACTIONS (2)
  - Oedema [Recovered/Resolved]
  - Pulmonary oedema [Recovered/Resolved]
